FAERS Safety Report 5213127-1 (Version None)
Quarter: 2007Q1

REPORT INFORMATION
  Report Type: 
  Country: None (occurrence: None)
  Receive Date: 20070119
  Receipt Date: 20070110
  Transmission Date: 20070707
  Serious: Yes (Life-Threatening, Hospitalization)
  Sender: FDA-Public Use
  Company Number: JP-AVENTIS-200613551JP

PATIENT
  Age: 79 Year
  Sex: Female
  Weight: 42 kg

DRUGS (5)
  1. ALLEGRA [Suspect]
     Indication: RHINITIS
     Route: 048
     Dates: start: 20061102, end: 20061103
  2. EBASTEL [Suspect]
     Indication: ECZEMA
     Route: 048
     Dates: start: 20061102, end: 20061105
  3. ZANTAC [Suspect]
     Indication: GASTRITIS
     Route: 048
     Dates: start: 20060919, end: 20061110
  4. PREDNISOLONE [Concomitant]
     Indication: COLLAGEN DISORDER
     Route: 048
     Dates: start: 20060922
  5. CALONAL [Concomitant]
     Indication: PYREXIA
     Route: 048

REACTIONS (7)
  - DYSPNOEA [None]
  - HAEMOGLOBIN DECREASED [None]
  - LYMPHOCYTE STIMULATION TEST POSITIVE [None]
  - MALAISE [None]
  - NEUTROPENIA [None]
  - PLATELET COUNT DECREASED [None]
  - RED BLOOD CELL COUNT DECREASED [None]
